FAERS Safety Report 9985620 (Version 2)
Quarter: 2014Q1

REPORT INFORMATION
  Report Type: Spontaneous
  Country: BE (occurrence: BE)
  Receive Date: 20140307
  Receipt Date: 20140311
  Transmission Date: 20141002
  Serious: Yes (Other)
  Sender: FDA-Public Use
  Company Number: CHPA2014BE003520

PATIENT
  Age: 89 Year
  Sex: Female

DRUGS (5)
  1. FERROUS SULFATE [Suspect]
     Indication: IRON DEFICIENCY ANAEMIA
     Dosage: 500 MG, QD
     Route: 065
  2. ACETYLSALICYLIC ACID [Concomitant]
     Dosage: 80 MG, QD
     Route: 065
  3. LEVOTHYROXINE [Concomitant]
     Dosage: 100 UG, QD
     Route: 065
  4. CALCIUM CARBONATE [Concomitant]
     Dosage: UNK, QD
     Route: 065
  5. SIMVASTATIN [Concomitant]
     Dosage: 40 MG, QD
     Route: 065

REACTIONS (9)
  - Oesophagitis [Recovering/Resolving]
  - Gastrointestinal angiodysplasia [Recovering/Resolving]
  - Microcytic anaemia [Recovering/Resolving]
  - General physical health deterioration [Recovering/Resolving]
  - Vertigo [Recovering/Resolving]
  - Malaise [Recovering/Resolving]
  - Pallor [Recovering/Resolving]
  - Dysphagia [Recovering/Resolving]
  - Pyrexia [Recovering/Resolving]
